FAERS Safety Report 8916295 (Version 1)
Quarter: 2012Q4

REPORT INFORMATION
  Report Type: 
  Country: US (occurrence: US)
  Receive Date: 20121120
  Receipt Date: 20121120
  Transmission Date: 20130627
  Serious: No
  Sender: FDA-Public Use
  Company Number: US-MYLANLABS-2012S1019268

PATIENT
  Age: 89 Year
  Sex: Female
  Weight: 69.4 kg

DRUGS (5)
  1. ALLOPURINOL TABLETS, USP [Suspect]
     Indication: GOUT
     Route: 048
     Dates: start: 20120423, end: 2012
  2. PREDNISONE [Concomitant]
  3. DIGOXIN [Concomitant]
  4. ALEVE [Concomitant]
  5. VITAMINS [Concomitant]

REACTIONS (1)
  - Thirst [Recovered/Resolved]
